FAERS Safety Report 18572021 (Version 2)
Quarter: 2020Q4

REPORT INFORMATION
  Report Type: Spontaneous
  Country: US (occurrence: US)
  Receive Date: 20201202
  Receipt Date: 20201210
  Transmission Date: 20210114
  Serious: Yes (Other)
  Sender: FDA-Public Use
  Company Number: US-FOUNDATIONCONSUMERHC-2020-US-023852

PATIENT
  Age: 25 Year
  Sex: Female
  Weight: 44.91 kg

DRUGS (1)
  1. PLAN B ONE-STEP [Suspect]
     Active Substance: LEVONORGESTREL
     Indication: POST COITAL CONTRACEPTION
     Dosage: 1.5MG X1 DOSE
     Route: 048
     Dates: start: 20201013, end: 20201013

REACTIONS (6)
  - Pregnancy after post coital contraception [Unknown]
  - Abortion spontaneous [Unknown]
  - Vaginal haemorrhage [Not Recovered/Not Resolved]
  - Drug ineffective [Unknown]
  - Back pain [Recovered/Resolved]
  - Human chorionic gonadotropin decreased [Recovered/Resolved]

NARRATIVE: CASE EVENT DATE: 20201013
